FAERS Safety Report 23265623 (Version 1)
Quarter: 2023Q4

REPORT INFORMATION
  Report Type: Spontaneous
  Country: US (occurrence: US)
  Receive Date: 20231206
  Receipt Date: 20231206
  Transmission Date: 20240110
  Serious: Yes (Hospitalization, Other)
  Sender: FDA-Public Use
  Company Number: US-JNJFOC-20231180664

PATIENT
  Age: 66 Year
  Sex: Female

DRUGS (2)
  1. HALDOL [Suspect]
     Active Substance: HALOPERIDOL
     Indication: Schizophrenia
     Route: 065
     Dates: end: 2023
  2. CAPLYTA [Interacting]
     Active Substance: LUMATEPERONE
     Indication: Schizophrenia
     Route: 048
     Dates: start: 2023, end: 202311

REACTIONS (5)
  - Hypophagia [Unknown]
  - Dehydration [Not Recovered/Not Resolved]
  - Dizziness [Unknown]
  - Fall [Unknown]
  - Drug interaction [Unknown]

NARRATIVE: CASE EVENT DATE: 20230101
